FAERS Safety Report 9174156 (Version 1)
Quarter: 2013Q1

REPORT INFORMATION
  Report Type: Spontaneous
  Country: NL (occurrence: None)
  Receive Date: 20130315
  Receipt Date: 20130315
  Transmission Date: 20140127
  Serious: Yes (Hospitalization)
  Sender: FDA-Public Use
  Company Number: 2013-04366

PATIENT
  Age: 8 Year
  Sex: Male

DRUGS (8)
  1. FEVERALL [Suspect]
     Indication: INFECTION
     Route: 042
     Dates: start: 20130216, end: 20130218
  2. KONAKION MM (PHYTOMENADIONE) [Concomitant]
  3. PROGRAF (TACROLIMUS) [Concomitant]
  4. PROGRAFT (TACROLIMUS) [Concomitant]
  5. CLINOLEIC INFVLST [Concomitant]
  6. PREDNISOLON?/00016201/ (PREDNISOLONE) [Concomitant]
  7. URSOCHOL (URSODEOXYCHOLIC ACID) [Concomitant]
  8. CHLORHEXIDINE (CHLORHEXIDINE) [Concomitant]

REACTIONS (1)
  - Drug ineffective [None]
